FAERS Safety Report 6255626-X (Version None)
Quarter: 2009Q3

REPORT INFORMATION
  Report Type: 
  Country: None (occurrence: None)
  Receive Date: 20090701
  Receipt Date: 20090616
  Transmission Date: 20100115
  Serious: No
  Sender: FDA-Public Use
  Company Number: 8047871

PATIENT
  Age: 46 Year
  Sex: Female

DRUGS (6)
  1. KEPPRA XR [Suspect]
     Dosage: 750 MG 2/D PO
     Route: 048
     Dates: start: 20090521, end: 20090609
  2. ZOLOFT [Concomitant]
  3. XANAX [Concomitant]
  4. TIZANIDINE HCL [Concomitant]
  5. INSULIN [Concomitant]
  6. LEVETIRACETAM [Concomitant]

REACTIONS (1)
  - RASH GENERALISED [None]
